FAERS Safety Report 9255071 (Version 1)
Quarter: 2013Q2

REPORT INFORMATION
  Report Type: Spontaneous
  Country: US (occurrence: US)
  Receive Date: 20130425
  Receipt Date: 20130425
  Transmission Date: 20140414
  Serious: Yes (Other)
  Sender: FDA-Public Use
  Company Number: US-JNJFOC-20130407981

PATIENT
  Age: 62 Year
  Sex: Female
  Weight: 47.17 kg

DRUGS (3)
  1. DURAGESIC [Suspect]
     Indication: PAIN
     Route: 062
  2. DURAGESIC [Suspect]
     Indication: PAIN
     Route: 062
  3. DURAGESIC [Suspect]
     Indication: PAIN
     Route: 062

REACTIONS (11)
  - Hallucination [Unknown]
  - Aphasia [Recovered/Resolved]
  - Mental impairment [Unknown]
  - Withdrawal syndrome [Not Recovered/Not Resolved]
  - Memory impairment [Not Recovered/Not Resolved]
  - Malaise [Not Recovered/Not Resolved]
  - Dizziness [Unknown]
  - Dysstasia [Unknown]
  - Product quality issue [Unknown]
  - Poor quality drug administered [Unknown]
  - Product quality issue [Unknown]
